FAERS Safety Report 11336253 (Version 1)
Quarter: 2015Q3

REPORT INFORMATION
  Report Type: Spontaneous
  Country: US (occurrence: None)
  Receive Date: 20150731
  Receipt Date: 20150731
  Transmission Date: 20151125
  Serious: No
  Sender: FDA-Public Use
  Company Number: None

PATIENT
  Age: 66 Year
  Sex: Male
  Weight: 63.9 kg

DRUGS (1)
  1. ISOSORBIDE DINITRATE. [Suspect]
     Active Substance: ISOSORBIDE DINITRATE
     Indication: HYPERTENSIVE CRISIS
     Route: 048
     Dates: start: 20131016, end: 20131016

REACTIONS (4)
  - Lethargy [None]
  - Fatigue [None]
  - Hyperhidrosis [None]
  - Hypotension [None]

NARRATIVE: CASE EVENT DATE: 20131016
